FAERS Safety Report 7877703 (Version 5)
Quarter: 2014Q3

REPORT INFORMATION
  Report Type: Report from Study
  Country: US (occurrence: US)
  Receive Date: 20110330
  Receipt Date: 20140912
  Transmission Date: 20150326
  Serious: Yes (Hospitalization, Other)
  Sender: FDA-Public Use
  Company Number: US-BAYER-200814118NA

PATIENT
  Age: 47 Year
  Sex: Male
  Weight: 102 kg

DRUGS (13)
  1. CAPTOPRIL. [Concomitant]
     Active Substance: CAPTOPRIL
     Indication: HYPERTENSION
     Dosage: 10 MG X 2
     Route: 048
     Dates: start: 200204
  2. DEPAKOTE [Concomitant]
     Active Substance: DIVALPROEX SODIUM
     Indication: CONVULSION
     Dosage: 250 MG + 2500 MG
     Route: 048
     Dates: start: 200404
  3. BETASERON [Suspect]
     Active Substance: INTERFERON BETA-1B
     Indication: RELAPSING-REMITTING MULTIPLE SCLEROSIS
     Route: 058
     Dates: start: 20000801, end: 20090422
  4. BETASERON [Suspect]
     Active Substance: INTERFERON BETA-1B
     Indication: RELAPSING-REMITTING MULTIPLE SCLEROSIS
     Dosage: 8 MIU, QOD
     Route: 058
     Dates: start: 20091212
  5. BETASERON [Suspect]
     Active Substance: INTERFERON BETA-1B
     Indication: RELAPSING-REMITTING MULTIPLE SCLEROSIS
     Dosage: UNK
  6. LOPERAMIDE [Concomitant]
     Active Substance: LOPERAMIDE
  7. BETASERON [Suspect]
     Active Substance: INTERFERON BETA-1B
     Indication: SECONDARY PROGRESSIVE MULTIPLE SCLEROSIS
     Dosage: AS USED DOSE: UNK
     Route: 058
     Dates: start: 20090507, end: 20090716
  8. NORVASC [Concomitant]
     Active Substance: AMLODIPINE BESYLATE
     Indication: HYPERTENSION
     Route: 048
     Dates: start: 200712
  9. ATENOLOL. [Concomitant]
     Active Substance: ATENOLOL
     Indication: HYPERTENSION
     Route: 048
     Dates: start: 200404
  10. BETASERON [Suspect]
     Active Substance: INTERFERON BETA-1B
     Indication: RELAPSING-REMITTING MULTIPLE SCLEROSIS
     Dosage: 8 MIU, QOD
     Route: 058
     Dates: start: 20090721
  11. BETASERON [Suspect]
     Active Substance: INTERFERON BETA-1B
     Indication: RELAPSING-REMITTING MULTIPLE SCLEROSIS
     Dosage: AS USED DOSE: UNK
     Route: 058
     Dates: start: 20091102, end: 20091203
  12. BETASERON [Suspect]
     Active Substance: INTERFERON BETA-1B
     Indication: RELAPSING-REMITTING MULTIPLE SCLEROSIS
     Dosage: 8 MIU, QOD
     Route: 058
  13. ALCOHOL [ETHANOL] [Concomitant]
     Dosage: ^I DRINK TOO MUCH^

REACTIONS (43)
  - Blood alcohol increased [Recovered/Resolved]
  - Gastrointestinal disorder [Recovered/Resolved]
  - Oedema peripheral [Not Recovered/Not Resolved]
  - Contusion [Not Recovered/Not Resolved]
  - Cataract [Not Recovered/Not Resolved]
  - Fear [Not Recovered/Not Resolved]
  - Staphylococcal infection [Recovered/Resolved]
  - Mental disorder [Unknown]
  - Alcohol poisoning [Recovered/Resolved]
  - Oesophageal perforation [Recovered/Resolved]
  - Alcohol poisoning [Recovered/Resolved]
  - Eating disorder [Recovered/Resolved]
  - Loss of consciousness [Recovered/Resolved]
  - Anger [Recovered/Resolved]
  - Oesophageal operation [Recovered/Resolved]
  - Coma [Recovered/Resolved]
  - Confusional state [None]
  - Influenza [Recovering/Resolving]
  - Tracheal disorder [Recovered/Resolved]
  - Coma [Recovered/Resolved]
  - Peripheral swelling [Recovered/Resolved]
  - Agraphia [Not Recovered/Not Resolved]
  - Anger [Not Recovered/Not Resolved]
  - Pain [Not Recovered/Not Resolved]
  - Frustration [Not Recovered/Not Resolved]
  - Oesophageal disorder [Recovered/Resolved]
  - Arthralgia [Not Recovered/Not Resolved]
  - Pain [Not Recovered/Not Resolved]
  - Accident [Recovered/Resolved]
  - Injection site induration [Not Recovered/Not Resolved]
  - Headache [Not Recovered/Not Resolved]
  - Reading disorder [Not Recovered/Not Resolved]
  - Diarrhoea haemorrhagic [Recovering/Resolving]
  - Abasia [Recovered/Resolved]
  - Faecal incontinence [Recovered/Resolved]
  - Convulsion [Recovered/Resolved]
  - Disorientation [Recovered/Resolved]
  - Headache [Not Recovered/Not Resolved]
  - Speech disorder [Not Recovered/Not Resolved]
  - Dizziness [Recovered/Resolved]
  - Balance disorder [Not Recovered/Not Resolved]
  - Diplopia [Not Recovered/Not Resolved]
  - Oesophageal operation [None]

NARRATIVE: CASE EVENT DATE: 2001
